FAERS Safety Report 9897677 (Version 2)
Quarter: 2014Q1

REPORT INFORMATION
  Report Type: Spontaneous
  Country: US (occurrence: US)
  Receive Date: 20140214
  Receipt Date: 20140214
  Transmission Date: 20141002
  Serious: Yes (Hospitalization, Disabling)
  Sender: FDA-Public Use
  Company Number: US-JNJFOC-20041101138

PATIENT
  Age: 16 Year
  Sex: Male

DRUGS (2)
  1. TYLENOL COLD [Suspect]
     Indication: INFLUENZA
     Route: 048
     Dates: start: 19990424, end: 19990424
  2. TYLENOL FLU [Suspect]
     Indication: INFLUENZA
     Route: 048
     Dates: start: 19990424, end: 19990424

REACTIONS (8)
  - Heat stroke [Not Recovered/Not Resolved]
  - Mental retardation [Not Recovered/Not Resolved]
  - Unevaluable event [Unknown]
  - Brain injury [Not Recovered/Not Resolved]
  - Cardio-respiratory arrest [Recovered/Resolved with Sequelae]
  - Anxiety [Unknown]
  - Brain hypoxia [Not Recovered/Not Resolved]
  - Hypoxic-ischaemic encephalopathy [Not Recovered/Not Resolved]
